FAERS Safety Report 7384395-5 (Version None)
Quarter: 2011Q1

REPORT INFORMATION
  Report Type: 
  Country: None (occurrence: None)
  Receive Date: 20110330
  Receipt Date: 20110228
  Transmission Date: 20110831
  Serious: Yes (Hospitalization, Other)
  Sender: FDA-Public Use
  Company Number: US-BAYER-201029746NA

PATIENT
  Sex: Female
  Weight: 77.098 kg

DRUGS (17)
  1. UNCODEABLE ^UNCLASSIFIABLE^ [Concomitant]
     Indication: CARDIOVASCULAR EVENT PROPHYLAXIS
     Dosage: 81 MG, UNK
     Route: 048
     Dates: start: 20080101
  2. CYANOCOBALAMIN [Concomitant]
     Indication: VITAMIN SUPPLEMENTATION
     Dosage: UNK UNK, Q1MON
  3. GLIPIZIDE [Concomitant]
     Indication: DIABETES MELLITUS
     Dosage: UNK
     Route: 048
     Dates: start: 20060801, end: 20071201
  4. CYMBALTA [Concomitant]
     Indication: FIBROMYALGIA
     Dosage: 60 MG, QD
     Dates: start: 20070901
  5. METFORMIN [Concomitant]
     Indication: DIABETES MELLITUS
     Dosage: 500 MG, QD
     Route: 048
     Dates: start: 20060801
  6. ZELNORM [Concomitant]
     Indication: PRODUCT USED FOR UNKNOWN INDICATION
     Dosage: UNK
     Dates: start: 20070126
  7. UNCODEABLE ^UNCLASSIFIABLE^ [Concomitant]
     Dosage: UNK
     Dates: start: 20070126
  8. LOESTRIN 1.5/30 [Concomitant]
     Indication: CONTRACEPTION
     Dosage: UNK
     Dates: start: 20080201
  9. YAZ [Suspect]
     Indication: ORAL CONTRACEPTION
     Dosage: UNK
     Route: 048
     Dates: start: 20061001
  10. PROAIR HFA [Concomitant]
     Indication: ASTHMA
  11. BENTYL [Concomitant]
     Indication: GASTRITIS
     Dosage: 20 MG, QD
     Route: 048
  12. IBUPROFEN [Concomitant]
     Dosage: 600 MG, BID
     Route: 048
  13. ALBUTEROL [Concomitant]
     Indication: ASTHMA
     Dosage: 2 PUFF(S), PRN
     Route: 045
  14. UNCODEABLE ^UNCLASSIFIABLE^ [Concomitant]
     Indication: PRODUCT USED FOR UNKNOWN INDICATION
     Dosage: 500 MG, TID
     Route: 048
     Dates: start: 20080416
  15. DARVOCET [Concomitant]
     Indication: FIBROMYALGIA
     Dosage: 100 MG, PRN
     Route: 048
  16. NEXIUM [Concomitant]
     Indication: GASTROOESOPHAGEAL REFLUX DISEASE
     Dosage: 40 MG, QD
     Dates: start: 20060801
  17. FLUCONAZOLE [Concomitant]
     Indication: PRODUCT USED FOR UNKNOWN INDICATION
     Dosage: 150 MG, ONCE
     Route: 048
     Dates: start: 20080324, end: 20080324

REACTIONS (2)
  - ABDOMINAL PAIN [None]
  - BILIARY DYSKINESIA [None]
